FAERS Safety Report 5758720-2 (Version None)
Quarter: 2008Q2

REPORT INFORMATION
  Report Type: 
  Country: None (occurrence: None)
  Receive Date: 20080603
  Receipt Date: 20080603
  Transmission Date: 20081010
  Serious: Yes (Hospitalization)
  Sender: FDA-Public Use
  Company Number: None

PATIENT
  Age: 79 Year
  Sex: Male

DRUGS (2)
  1. MOXIFLOXACIN HCL [Suspect]
     Indication: UPPER RESPIRATORY TRACT INFECTION
     Dosage: 400 MG EVERY DAY PO
     Route: 048
     Dates: start: 20080225, end: 20080303
  2. MOXIFLOXACIN HCL [Suspect]
     Dosage: 400 MG EVERY DAY IV
     Route: 042
     Dates: start: 20080225, end: 20080227

REACTIONS (4)
  - CHRONIC OBSTRUCTIVE PULMONARY DISEASE [None]
  - CLOSTRIDIUM DIFFICILE COLITIS [None]
  - CONDITION AGGRAVATED [None]
  - COR PULMONALE [None]
